FAERS Safety Report 9527655 (Version 1)
Quarter: 2013Q1

REPORT INFORMATION
  Report Type: Spontaneous
  Country: US (occurrence: None)
  Receive Date: 20130314
  Receipt Date: 20130314
  Transmission Date: 20140127
  Serious: No
  Sender: FDA-Public Use
  Company Number: 1211USA006365

PATIENT
  Age: 63 Year
  Sex: Male

DRUGS (3)
  1. PEGINTRON (PEGINTERFERON ALFA-2B) POWDER FOR INJECTION, 120MICROGRAM [Suspect]
     Indication: HEPATITIS C
     Route: 058
     Dates: start: 20120209
  2. VICTRELIS (BOCEPREVIR) CAPSULE [Suspect]
     Indication: HEPATITIS C
     Route: 048
     Dates: start: 20120329
  3. RIBASPHERE (RIBAVIRIN) [Suspect]

REACTIONS (9)
  - Choking [None]
  - Weight decreased [None]
  - Dyspnoea [None]
  - Libido decreased [None]
  - Memory impairment [None]
  - Cough [None]
  - Haematocrit decreased [None]
  - Haemoglobin decreased [None]
  - Inappropriate schedule of drug administration [None]
